FAERS Safety Report 14366085 (Version 4)
Quarter: 2025Q4

REPORT INFORMATION
  Report Type: Spontaneous
  Country: US (occurrence: US)
  Receive Date: 20180109
  Receipt Date: 20251231
  Transmission Date: 20260118
  Serious: Yes (Life-Threatening, Other)
  Sender: AUROBINDO
  Company Number: US-AUROBINDO-AUR-APL-2017-45369

PATIENT
  Age: 49 Year
  Sex: Male

DRUGS (1)
  1. LEVOFLOXACIN [Suspect]
     Active Substance: LEVOFLOXACIN
     Indication: Upper respiratory tract infection
     Dosage: 500 MG, DAILY

REACTIONS (6)
  - Eosinophilic pneumonia acute [Recovered/Resolved]
  - Leukocytosis [Recovered/Resolved]
  - Hypoxia [Recovered/Resolved]
  - Pyrexia [Recovered/Resolved]
  - Dyspnoea exertional [Recovered/Resolved]
  - Wheezing [Recovered/Resolved]
